FAERS Safety Report 6239680-7 (Version None)
Quarter: 2009Q2

REPORT INFORMATION
  Report Type: 
  Country: None (occurrence: None)
  Receive Date: 20090619
  Receipt Date: 20090612
  Transmission Date: 20091009
  Serious: Yes (Hospitalization)
  Sender: FDA-Public Use
  Company Number: 2007SP003494

PATIENT
  Age: 10 Year
  Sex: Female

DRUGS (3)
  1. TEMODAL [Suspect]
     Indication: BRAIN NEOPLASM
     Dosage: 120 MG;QD;PO
     Route: 048
     Dates: start: 20060825, end: 20061212
  2. VINCRISTINE [Suspect]
     Indication: DRUG USE FOR UNKNOWN INDICATION
     Dosage: 1.5 MG/M2
  3. CARBOPLATIN [Suspect]
     Indication: DRUG USE FOR UNKNOWN INDICATION
     Dosage: 150 MG/M2

REACTIONS (8)
  - ARACHNOIDITIS [None]
  - BACK PAIN [None]
  - CAUDA EQUINA SYNDROME [None]
  - FALL [None]
  - GENERAL PHYSICAL CONDITION ABNORMAL [None]
  - MENINGITIS CRYPTOCOCCAL [None]
  - MUSCULOSKELETAL STIFFNESS [None]
  - OPPORTUNISTIC INFECTION [None]
